FAERS Safety Report 7941209-X (Version None)
Quarter: 2011Q4

REPORT INFORMATION
  Report Type: 
  Country: None (occurrence: None)
  Receive Date: 20111128
  Receipt Date: 20111121
  Transmission Date: 20120403
  Serious: Yes (Other)
  Sender: FDA-Public Use
  Company Number: SE-JNJFOC-20111007374

PATIENT
  Age: 43 Year
  Sex: Male

DRUGS (5)
  1. BENZODIAZEPINES NOS [Concomitant]
     Route: 065
  2. RISPERDAL CONSTA [Suspect]
     Route: 030
     Dates: start: 20111006
  3. RISPERDAL CONSTA [Suspect]
     Indication: SCHIZOPHRENIA
     Route: 030
  4. PAROXETINE HCL [Concomitant]
     Route: 065
  5. RISPERDAL CONSTA [Suspect]
     Route: 030

REACTIONS (1)
  - DEEP VEIN THROMBOSIS [None]
